FAERS Safety Report 7370747 (Version 9)
Quarter: 2015Q1

REPORT INFORMATION
  Report Type: Report from Study
  Country: RU (occurrence: RU)
  Receive Date: 20100429
  Receipt Date: 20150210
  Transmission Date: 20150721
  Serious: Yes (Other)
  Sender: FDA-Public Use
  Company Number: RU-ROCHE-698798

PATIENT
  Age: 52 Year
  Sex: Male
  Weight: 90 kg

DRUGS (5)
  1. FOLIC ACID. [Concomitant]
     Active Substance: FOLIC ACID
     Route: 065
     Dates: start: 20090310, end: 20100519
  2. TOCILIZUMAB [Suspect]
     Active Substance: TOCILIZUMAB
     Dosage: FREQUENCY: 1 TIMES OF, LAST DOSE PRIOR TO SAE 24 MARCH 2010, THERAPY PERMANENTLY DISCONTINUED
     Route: 042
  3. TOCILIZUMAB [Suspect]
     Active Substance: TOCILIZUMAB
     Indication: RHEUMATOID ARTHRITIS
     Route: 042
  4. DICLOFENAC [Concomitant]
     Active Substance: DICLOFENAC
     Dosage: REPOTED AS DICLIFENAC
     Route: 065
     Dates: start: 20071113, end: 20100519
  5. PLACEBO [Suspect]
     Active Substance: UNSPECIFIED INGREDIENT
     Indication: RHEUMATOID ARTHRITIS
     Dosage: FORM AND ROUTE AS PER PROTOCOL
     Route: 048
     Dates: start: 20090307, end: 20100519

REACTIONS (1)
  - Glioblastoma [Not Recovered/Not Resolved]

NARRATIVE: CASE EVENT DATE: 20100413
